FAERS Safety Report 12850969 (Version 1)
Quarter: 2016Q4

REPORT INFORMATION
  Report Type: Spontaneous
  Country: JP (occurrence: JP)
  Receive Date: 20161017
  Receipt Date: 20161017
  Transmission Date: 20170207
  Serious: Yes (Other)
  Sender: FDA-Public Use
  Company Number: JP-BAYER-2016-179220

PATIENT
  Sex: Male

DRUGS (1)
  1. NEXAVAR [Suspect]
     Active Substance: SORAFENIB
     Indication: HEPATOCELLULAR CARCINOMA
     Dosage: DAILY DOSE 400 MG
     Route: 048
     Dates: start: 20160822, end: 20160906

REACTIONS (3)
  - Ascites [Not Recovered/Not Resolved]
  - Dysphonia [Recovering/Resolving]
  - Malaise [Not Recovered/Not Resolved]

NARRATIVE: CASE EVENT DATE: 20160906
